FAERS Safety Report 5646727-5 (Version None)
Quarter: 2008Q1

REPORT INFORMATION
  Report Type: 
  Country: None (occurrence: None)
  Receive Date: 20080228
  Receipt Date: 20080213
  Transmission Date: 20080703
  Serious: Yes (Hospitalization, Other)
  Sender: FDA-Public Use
  Company Number: 2008S1002322

PATIENT
  Age: 63 Year
  Sex: Female

DRUGS (4)
  1. RAPAMUNE [Suspect]
     Indication: DRUG USE FOR UNKNOWN INDICATION
     Dosage: 3.5 MG DAILY ORAL
     Route: 048
     Dates: start: 20071001
  2. AZATHIOPRINE [Suspect]
     Indication: DRUG USE FOR UNKNOWN INDICATION
     Dosage: 150 MG DAILY ORAL
     Route: 048
  3. ATENOLOL [Suspect]
     Indication: DRUG USE FOR UNKNOWN INDICATION
     Dosage: 50 MG DAILY ORAL
     Route: 048
  4. MAXIDEX [Suspect]
     Indication: DRUG USE FOR UNKNOWN INDICATION
     Dosage: TWICE A DAY; OPHTHALMIC
     Route: 047
     Dates: start: 20071001

REACTIONS (5)
  - DIARRHOEA [None]
  - DRUG RASH WITH EOSINOPHILIA AND SYSTEMIC SYMPTOMS [None]
  - RENAL FAILURE ACUTE [None]
  - RHABDOMYOLYSIS [None]
  - VOMITING [None]
